FAERS Safety Report 7135462-2 (Version None)
Quarter: 2010Q4

REPORT INFORMATION
  Report Type: 
  Country: None (occurrence: None)
  Receive Date: 20101203
  Receipt Date: 20101129
  Transmission Date: 20110411
  Serious: Yes (Other)
  Sender: FDA-Public Use
  Company Number: CHPA2010US18232

PATIENT
  Age: 53 Year
  Sex: Female

DRUGS (11)
  1. THERAFLU WARMING RELIEF COLD + CHEST CONG (NCH) [Suspect]
     Indication: NASOPHARYNGITIS
     Dosage: 3 TSP, ONCE/SINGLE
     Route: 048
     Dates: start: 20101124, end: 20101124
  2. THERAFLU WARMING RELIEF COLD + CHEST CONG (NCH) [Suspect]
     Indication: UPPER RESPIRATORY TRACT CONGESTION
  3. LEVOTHYROXINE SODIUM [Concomitant]
     Dosage: UNK, UNK
  4. TIZANIDINE [Concomitant]
     Dosage: UNK, UNK
  5. MORPHINE SULFATE [Concomitant]
     Dosage: UNK, UNK
  6. LISINOPRIL [Concomitant]
     Dosage: UNK, UNK
  7. LYRICA [Concomitant]
     Dosage: UNK, UNK
  8. DICLOFENAC [Concomitant]
     Dosage: UNK, UNK
  9. CYMBALTA [Concomitant]
     Dosage: UNK, UNK
  10. TRAZODONE HCL [Concomitant]
     Dosage: UNK, UNK
  11. HYDROCHLOROTHIAZIDE [Concomitant]
     Dosage: UNK, UNK

REACTIONS (4)
  - CONTUSION [None]
  - FALL [None]
  - HYPOTENSION [None]
  - SYNCOPE [None]
